FAERS Safety Report 23948355 (Version 1)
Quarter: 2024Q2

REPORT INFORMATION
  Report Type: Spontaneous
  Country: US (occurrence: US)
  Receive Date: 20240607
  Receipt Date: 20240607
  Transmission Date: 20240716
  Serious: No
  Sender: FDA-Public Use
  Company Number: US-APOTEX-2024AP006876

PATIENT

DRUGS (2)
  1. SIROLIMUS [Interacting]
     Active Substance: SIROLIMUS
     Indication: Chronic graft versus host disease
     Dosage: UNK
     Route: 065
  2. BELUMOSUDIL [Interacting]
     Active Substance: BELUMOSUDIL
     Indication: Chronic graft versus host disease
     Dosage: UNK
     Route: 065

REACTIONS (2)
  - Immunosuppressant drug level increased [Unknown]
  - Drug interaction [Unknown]
